FAERS Safety Report 8001554-9 (Version None)
Quarter: 2011Q4

REPORT INFORMATION
  Report Type: 
  Country: None (occurrence: None)
  Receive Date: 20111222
  Receipt Date: 20111220
  Transmission Date: 20120403
  Serious: Yes (Hospitalization, Other)
  Sender: FDA-Public Use
  Company Number: IT-PFIZER INC-2011188138

PATIENT
  Age: 48 Year
  Sex: Male

DRUGS (11)
  1. ARTHROTEC [Suspect]
     Dosage: [DICLOFENAC 75MG/ MISOPROSTOL 200 MCG] MODIFIED RELEASE TABLET; DAILY
     Route: 048
     Dates: start: 20110415
  2. TRAMADOL [Concomitant]
     Indication: PRODUCT USED FOR UNKNOWN INDICATION
     Dosage: KOLIBRI 37.5 MG + 325 MG
     Route: 065
  3. ARTHROTEC [Suspect]
     Indication: BACK PAIN
     Dosage: [DICLOFENAC 75MG/ MISOPROSTOL 200 MCG] MODIFIED RELEASE TABLET; DAILY
     Route: 048
     Dates: start: 20110315, end: 20110325
  4. VOLTAREN [Suspect]
     Indication: BACK PAIN
     Dosage: 75 MG, AS NEEDED
     Route: 048
     Dates: start: 20110101, end: 20110415
  5. PARACETAMOL [Concomitant]
     Indication: PRODUCT USED FOR UNKNOWN INDICATION
     Dosage: KOLIBRI 37.5 MG + 325 MG
  6. TORADOL [Suspect]
     Indication: BACK PAIN
     Dosage: 40 GTT DAILY
     Route: 048
     Dates: start: 20110325, end: 20110415
  7. DEURSIL [Concomitant]
     Indication: PRODUCT USED FOR UNKNOWN INDICATION
     Dosage: UNK
     Route: 065
  8. EPROSARTAN [Concomitant]
     Indication: PRODUCT USED FOR UNKNOWN INDICATION
     Dosage: UNK
     Route: 065
  9. TENORETIC 100 [Suspect]
     Indication: HYPERTENSION
     Dosage: 50 MG/12.5 MG, DAILY
     Route: 048
     Dates: start: 20060421, end: 20110421
  10. ORUDIS [Suspect]
     Indication: BACK PAIN
     Dosage: 200 MG DAILY
     Route: 048
     Dates: start: 20110415, end: 20110420
  11. AULIN [Suspect]
     Indication: BACK PAIN
     Dosage: 100 MG, AS NEEDED
     Route: 048
     Dates: start: 20110101, end: 20110415

REACTIONS (2)
  - RENAL FAILURE [None]
  - RETROPERITONEAL FIBROSIS [None]
